FAERS Safety Report 4999749-1 (Version None)
Quarter: 2006Q2

REPORT INFORMATION
  Report Type: 
  Country: None (occurrence: None)
  Receive Date: 20060511
  Receipt Date: 20060503
  Transmission Date: 20061013
  Serious: Yes (Hospitalization)
  Sender: FDA-Public Use
  Company Number: FR-GLAXOSMITHKLINE-B0422367A

PATIENT
  Age: 62 Year
  Sex: Female

DRUGS (5)
  1. PAROXETINE HYDROCHLORIDE [Suspect]
     Dosage: 20MG IN THE MORNING
     Route: 048
  2. TERALITHE [Suspect]
     Dosage: 250MG TWICE PER DAY
     Route: 048
  3. LEVOTHYROX [Suspect]
     Dosage: 75MCG IN THE MORNING
     Route: 048
  4. RIVOTRIL [Suspect]
     Dosage: 2MG AT NIGHT
     Route: 048
  5. DIET [Concomitant]

REACTIONS (2)
  - BLOOD PARATHYROID HORMONE INCREASED [None]
  - HYPERCALCAEMIA [None]
